FAERS Safety Report 5980106-6 (Version None)
Quarter: 2008Q4

REPORT INFORMATION
  Report Type: 
  Country: None (occurrence: None)
  Receive Date: 20081205
  Receipt Date: 20081121
  Transmission Date: 20090506
  Serious: Yes (Hospitalization, Other)
  Sender: FDA-Public Use
  Company Number: SE-AMGEN-UK311540

PATIENT
  Age: 32 Year
  Sex: Female

DRUGS (3)
  1. NEUPOGEN [Suspect]
     Indication: AUTOIMMUNE NEUTROPENIA
     Route: 058
     Dates: start: 20080811
  2. NEUPOGEN [Suspect]
     Route: 058
  3. ANTIBIOTICS [Concomitant]

REACTIONS (1)
  - CAESAREAN SECTION [None]
